FAERS Safety Report 25093499 (Version 1)
Quarter: 2025Q1

REPORT INFORMATION
  Report Type: Spontaneous
  Country: PL (occurrence: PL)
  Receive Date: 20250319
  Receipt Date: 20250319
  Transmission Date: 20250408
  Serious: Yes (Other)
  Sender: GLAND PHARMA LTD
  Company Number: PL-GLANDPHARMA-PL-2025GLNLIT00718

PATIENT
  Age: 36 Year
  Sex: Male

DRUGS (27)
  1. NELARABINE [Suspect]
     Active Substance: NELARABINE
     Indication: T-cell type acute leukaemia
     Route: 065
  2. CYCLOPHOSPHAMIDE [Suspect]
     Active Substance: CYCLOPHOSPHAMIDE
     Indication: T-cell type acute leukaemia
     Route: 065
  3. ETOPOSIDE [Suspect]
     Active Substance: ETOPOSIDE
     Indication: T-cell type acute leukaemia
     Route: 065
  4. PROPAFENONE [Concomitant]
     Active Substance: PROPAFENONE
     Route: 065
  5. PROPAFENONE [Concomitant]
     Active Substance: PROPAFENONE
     Indication: Atrial fibrillation
  6. PROPAFENONE [Concomitant]
     Active Substance: PROPAFENONE
     Indication: Cardiac tamponade
  7. PREDNISONE [Concomitant]
     Active Substance: PREDNISONE
     Route: 065
  8. PREDNISONE [Concomitant]
     Active Substance: PREDNISONE
     Indication: Atrial fibrillation
  9. PREDNISONE [Concomitant]
     Active Substance: PREDNISONE
     Indication: Cardiac tamponade
  10. COLCHICINE [Concomitant]
     Active Substance: COLCHICINE
     Route: 065
  11. COLCHICINE [Concomitant]
     Active Substance: COLCHICINE
     Indication: Atrial fibrillation
  12. COLCHICINE [Concomitant]
     Active Substance: COLCHICINE
     Indication: Cardiac tamponade
  13. FLUDARABINE [Concomitant]
     Active Substance: FLUDARABINE PHOSPHATE
     Route: 065
  14. FLUDARABINE [Concomitant]
     Active Substance: FLUDARABINE PHOSPHATE
     Indication: Atrial fibrillation
  15. FLUDARABINE [Concomitant]
     Active Substance: FLUDARABINE PHOSPHATE
     Indication: Cardiac tamponade
  16. CYTARABINE [Concomitant]
     Active Substance: CYTARABINE
     Route: 065
  17. CYTARABINE [Concomitant]
     Active Substance: CYTARABINE
     Indication: Atrial fibrillation
  18. CYTARABINE [Concomitant]
     Active Substance: CYTARABINE
     Indication: Cardiac tamponade
  19. MITOXANTRONE [Concomitant]
     Active Substance: MITOXANTRONE HYDROCHLORIDE
     Route: 065
  20. MITOXANTRONE [Concomitant]
     Active Substance: MITOXANTRONE HYDROCHLORIDE
     Indication: Atrial fibrillation
  21. MITOXANTRONE [Concomitant]
     Active Substance: MITOXANTRONE HYDROCHLORIDE
     Indication: Cardiac tamponade
  22. TREOSULFAN [Concomitant]
     Active Substance: TREOSULFAN
     Indication: Product used for unknown indication
     Route: 065
  23. THIOTEPA [Concomitant]
     Active Substance: THIOTEPA
     Indication: Product used for unknown indication
     Route: 065
  24. MYCOPHENOLATE MOFETIL [Concomitant]
     Active Substance: MYCOPHENOLATE MOFETIL
     Indication: Product used for unknown indication
     Route: 065
  25. TACROLIMUS [Concomitant]
     Active Substance: TACROLIMUS
     Indication: Product used for unknown indication
     Route: 065
  26. DEFIBROTIDE [Concomitant]
     Active Substance: DEFIBROTIDE (BOVINE)
     Indication: Venoocclusive liver disease
     Route: 065
  27. DEFIBROTIDE [Concomitant]
     Active Substance: DEFIBROTIDE (BOVINE)

REACTIONS (1)
  - Pancytopenia [Recovered/Resolved]
